FAERS Safety Report 19766642 (Version 7)
Quarter: 2021Q4

REPORT INFORMATION
  Report Type: Report from Study
  Country: AR (occurrence: AR)
  Receive Date: 20210831
  Receipt Date: 20211217
  Transmission Date: 20220303
  Serious: Yes (Hospitalization, Other)
  Sender: FDA-Public Use
  Company Number: AR-AMGEN-ARGSL2019200139

PATIENT
  Age: 57 Year
  Sex: Female

DRUGS (2)
  1. VECTIBIX [Suspect]
     Active Substance: PANITUMUMAB
     Indication: Colorectal cancer metastatic
     Dosage: UNK UNK, Q2WK (EVERY 14 DAYS)
     Route: 065
     Dates: start: 201905
  2. VECTIBIX [Suspect]
     Active Substance: PANITUMUMAB
     Dosage: UNK, Q2WK (DOSE REDUCED)
     Route: 065
     Dates: end: 20211007

REACTIONS (17)
  - White blood cell count decreased [Unknown]
  - Urinary tract infection [Unknown]
  - Dehydration [Not Recovered/Not Resolved]
  - Vomiting [Not Recovered/Not Resolved]
  - Diarrhoea [Not Recovered/Not Resolved]
  - Seizure [Unknown]
  - Cardiac failure [Unknown]
  - Hydronephrosis [Unknown]
  - Kidney infection [Unknown]
  - Anaemia [Unknown]
  - Red blood cell count decreased [Unknown]
  - Discomfort [Recovering/Resolving]
  - Dizziness [Unknown]
  - Erythema [Unknown]
  - Rash [Unknown]
  - Pyrexia [Unknown]
  - Renal pain [Unknown]

NARRATIVE: CASE EVENT DATE: 20190101
